FAERS Safety Report 7536987-8 (Version None)
Quarter: 2011Q2

REPORT INFORMATION
  Report Type: 
  Country: None (occurrence: None)
  Receive Date: 20110609
  Receipt Date: 20110526
  Transmission Date: 20111010
  Serious: Yes (Other)
  Sender: FDA-Public Use
  Company Number: PHHY2011CN48420

PATIENT
  Age: 23 Year
  Sex: Male

DRUGS (3)
  1. BROMOCRIPTINE MESYLATE [Suspect]
     Indication: AUTONOMIC NERVOUS SYSTEM IMBALANCE
     Dosage: UNK UKN, UNK
  2. PROPRANOLOL [Suspect]
     Indication: AUTONOMIC NERVOUS SYSTEM IMBALANCE
     Dosage: UNK UKN, UNK
  3. GABAPENTIN [Suspect]
     Indication: AUTONOMIC NERVOUS SYSTEM IMBALANCE
     Dosage: UNK UKN, UNK

REACTIONS (3)
  - DRUG INEFFECTIVE [None]
  - HYDROCEPHALUS [None]
  - AUTONOMIC NERVOUS SYSTEM IMBALANCE [None]
